FAERS Safety Report 5489766-X (Version None)
Quarter: 2007Q4

REPORT INFORMATION
  Report Type: 
  Country: None (occurrence: None)
  Receive Date: 20071018
  Receipt Date: 20070626
  Transmission Date: 20080405
  Serious: No
  Sender: FDA-Public Use
  Company Number: US-ASTRAZENECA-2007UW15187

PATIENT
  Age: 11 Year
  Sex: Female
  Weight: 43.5 kg

DRUGS (1)
  1. MERREM [Suspect]
     Indication: OSTEOMYELITIS
     Route: 042
     Dates: start: 20070501

REACTIONS (1)
  - TOOTH DISCOLOURATION [None]
